FAERS Safety Report 4264517-5 (Version None)
Quarter: 2004Q1

REPORT INFORMATION
  Report Type: 
  Country: None (occurrence: None)
  Receive Date: 20040102
  Receipt Date: 20031219
  Transmission Date: 20041129
  Serious: Yes (Other)
  Sender: FDA-Public Use
  Company Number: 2003041473

PATIENT
  Sex: Male
  Weight: 72.5755 kg

DRUGS (3)
  1. DILANTIN [Suspect]
     Indication: CONVULSION
     Dosage: 300 MG (DAILY), ORAL
     Route: 048
  2. CITRUS PARADISI FRUIT JUICE (CITRUS PARADISI FRUIT JUICE) [Suspect]
     Indication: ILL-DEFINED DISORDER
     Dosage: ORAL
     Route: 048
     Dates: end: 20030101
  3. MIRTAZAPINE [Concomitant]

REACTIONS (9)
  - CONVULSION [None]
  - DRUG INTERACTION [None]
  - DRUG LEVEL INCREASED [None]
  - FOOD INTERACTION [None]
  - HYPOAESTHESIA [None]
  - PARAESTHESIA [None]
  - PROSTATE CANCER [None]
  - THIRST [None]
  - TREATMENT NONCOMPLIANCE [None]
